FAERS Safety Report 10778034 (Version 1)
Quarter: 2015Q1

REPORT INFORMATION
  Report Type: Spontaneous
  Country: US (occurrence: US)
  Receive Date: 20150209
  Receipt Date: 20150209
  Transmission Date: 20150721
  Serious: No
  Sender: FDA-Public Use
  Company Number: US-AMGEN-USASP2014024265

PATIENT
  Age: 57 Year
  Sex: Female

DRUGS (15)
  1. HERCEPTIN [Suspect]
     Active Substance: TRASTUZUMAB
     Indication: BREAST CANCER
     Dosage: 147 MG, UNK
     Route: 042
     Dates: start: 20130129
  2. HEPARIN FLUSH [Concomitant]
     Dosage: 5 ML, UNK
     Route: 042
  3. NORMAL SALINE [Concomitant]
     Active Substance: SODIUM CHLORIDE
     Dosage: 500 ML, UNK
     Route: 042
  4. HERCEPTIN [Suspect]
     Active Substance: TRASTUZUMAB
     Dosage: 142 MG, UNK
     Route: 042
     Dates: start: 20130327
  5. CARBOPLATIN. [Concomitant]
     Active Substance: CARBOPLATIN
     Dosage: 570 MG, UNK
     Route: 042
  6. NORMAL SALINE [Concomitant]
     Active Substance: SODIUM CHLORIDE
     Dosage: 5 ML, UNK
     Route: 042
  7. PALONOSETRON [Concomitant]
     Active Substance: PALONOSETRON
     Dosage: 0.25 MG, UNK
     Route: 042
  8. HERCEPTIN [Suspect]
     Active Substance: TRASTUZUMAB
     Dosage: 273 MG, UNK
     Route: 042
     Dates: start: 20130131
  9. CARBOPLATIN. [Concomitant]
     Active Substance: CARBOPLATIN
     Dosage: 640 MG, UNK
     Route: 042
  10. DOCETAXEL. [Concomitant]
     Active Substance: DOCETAXEL
     Dosage: 130 MG, UNK
     Route: 042
  11. HERCEPTIN [Suspect]
     Active Substance: TRASTUZUMAB
     Dosage: 140 MG, UNK
     Route: 042
     Dates: start: 20130307
  12. LIDOCAINE. [Concomitant]
     Active Substance: LIDOCAINE
     Dosage: 1 ML, UNK
  13. DEXAMETHASONE. [Concomitant]
     Active Substance: DEXAMETHASONE
     Dosage: 20 MG, UNK
     Route: 042
  14. NEULASTA [Suspect]
     Active Substance: PEGFILGRASTIM
     Indication: PRODUCT USED FOR UNKNOWN INDICATION
     Dosage: UNK
     Route: 042
  15. HERCEPTIN [Suspect]
     Active Substance: TRASTUZUMAB
     Dosage: 139 MG, UNK
     Route: 042
     Dates: start: 20130206

REACTIONS (10)
  - Swelling [Unknown]
  - Tenderness [Unknown]
  - Limb injury [Unknown]
  - Dysphonia [Unknown]
  - Pain in extremity [Unknown]
  - Fall [Unknown]
  - Haematochezia [Unknown]
  - Contusion [Unknown]
  - Influenza like illness [Unknown]
  - Nasopharyngitis [Unknown]
